APPROVED DRUG PRODUCT: FLOVENT DISKUS 250
Active Ingredient: FLUTICASONE PROPIONATE
Strength: 0.25MG/INH
Dosage Form/Route: POWDER;INHALATION
Application: N020833 | Product #003
Applicant: GLAXO GROUP LTD ENGLAND DBA GLAXOSMITHKLINE
Approved: Sep 29, 2000 | RLD: Yes | RS: Yes | Type: RX